FAERS Safety Report 25900225 (Version 2)
Quarter: 2025Q4

REPORT INFORMATION
  Report Type: Spontaneous
  Country: US (occurrence: US)
  Receive Date: 20251009
  Receipt Date: 20251103
  Transmission Date: 20260118
  Serious: No
  Sender: AMGEN
  Company Number: US-AMGEN-USASP2025197192

PATIENT
  Age: 68 Year
  Sex: Male
  Weight: 142 kg

DRUGS (1)
  1. NEULASTA [Suspect]
     Active Substance: PEGFILGRASTIM
     Indication: Prophylaxis
     Dosage: UNK
     Route: 065

REACTIONS (3)
  - Device adhesion issue [Unknown]
  - Application site pain [Unknown]
  - Device use error [Unknown]

NARRATIVE: CASE EVENT DATE: 20250101
